FAERS Safety Report 16701755 (Version 1)
Quarter: 2019Q3

REPORT INFORMATION
  Report Type: Spontaneous
  Country: US (occurrence: US)
  Receive Date: 20190814
  Receipt Date: 20190814
  Transmission Date: 20191004
  Serious: Yes (Hospitalization)
  Sender: FDA-Public Use
  Company Number: US-PFIZER INC-2019345482

PATIENT
  Age: 80 Year
  Sex: Female

DRUGS (3)
  1. HYDROCODONE BITARTRATE AND ACETAMINOPHEN [Concomitant]
     Active Substance: ACETAMINOPHEN\HYDROCODONE BITARTRATE
     Indication: PAIN
     Dosage: UNK(5-325 MG BY MOUTH, 1-2 TABLETS EVERY SIX HOURS AS NEEDED FOR PAIN)
     Route: 048
  2. LYRICA [Suspect]
     Active Substance: PREGABALIN
     Indication: PAIN
     Dosage: 1 DF, 1X/DAY
  3. LYRICA [Suspect]
     Active Substance: PREGABALIN
     Indication: NEUROPATHY PERIPHERAL
     Dosage: 150 MG, 2X/DAY
     Route: 048
     Dates: start: 2016

REACTIONS (3)
  - Dizziness [Unknown]
  - Infection [Unknown]
  - Intentional product use issue [Unknown]
